FAERS Safety Report 8264384-9 (Version None)
Quarter: 2012Q2

REPORT INFORMATION
  Report Type: 
  Country: None (occurrence: None)
  Receive Date: 20120406
  Receipt Date: 20120403
  Transmission Date: 20120825
  Serious: Yes (Other)
  Sender: FDA-Public Use
  Company Number: PHEH2012US007321

PATIENT
  Sex: Female
  Weight: 116.55 kg

DRUGS (10)
  1. GILENYA [Suspect]
     Dosage: 0.5 MG, DAILY
     Route: 048
  2. ADVAIR DISKUS 100/50 [Concomitant]
     Dosage: UNK UKN, UNK
  3. ONDANSETRON [Concomitant]
     Dosage: UNK UKN, UNK
  4. AMIODARONE HCL [Concomitant]
     Dosage: 200 MG, UNK
  5. MAXZIDE [Concomitant]
     Dosage: UNK UKN, UNK
  6. ATIVAN [Concomitant]
     Dosage: 0.5 MG, UNK
  7. TRAMADOL HCL [Concomitant]
     Dosage: 50 MG, UNK
  8. EXTRA STRENGTH TYLENOL [Concomitant]
     Dosage: UNK UKN, UNK
  9. ALBUTEROL [Concomitant]
     Dosage: 90 UG, UNK
  10. SUMATRIPTAN [Concomitant]
     Dosage: 25 MG, UNK

REACTIONS (1)
  - VISUAL ACUITY REDUCED [None]
